FAERS Safety Report 12631775 (Version 3)
Quarter: 2016Q3

REPORT INFORMATION
  Report Type: Spontaneous
  Country: US (occurrence: US)
  Receive Date: 20160808
  Receipt Date: 20160808
  Transmission Date: 20161109
  Serious: No
  Sender: FDA-Public Use
  Company Number: US-BEH-2016060965

PATIENT
  Sex: Female
  Weight: 56 kg

DRUGS (15)
  1. HIZENTRA [Suspect]
     Active Substance: HUMAN IMMUNOGLOBULIN G
     Route: 058
  2. HIZENTRA [Suspect]
     Active Substance: HUMAN IMMUNOGLOBULIN G
     Indication: IMMUNODEFICIENCY COMMON VARIABLE
     Route: 058
  3. DIPHENHYDRAMINE. [Concomitant]
     Active Substance: DIPHENHYDRAMINE
  4. HIZENTRA [Suspect]
     Active Substance: HUMAN IMMUNOGLOBULIN G
     Route: 058
  5. LIDOCAINE/PRILOCAINE [Concomitant]
     Active Substance: LIDOCAINE\PRILOCAINE
  6. PROPRANOLOL [Concomitant]
     Active Substance: PROPRANOLOL\PROPRANOLOL HYDROCHLORIDE
  7. VENTOLIN [Concomitant]
     Active Substance: ALBUTEROL SULFATE
  8. SUMATRIPTAN SUCCINATE. [Concomitant]
     Active Substance: SUMATRIPTAN SUCCINATE
  9. LIDOCAINE. [Concomitant]
     Active Substance: LIDOCAINE
  10. IMITREX [Concomitant]
     Active Substance: SUMATRIPTAN SUCCINATE
  11. ADDERALL [Concomitant]
     Active Substance: AMPHETAMINE ASPARTATE\AMPHETAMINE SULFATE\DEXTROAMPHETAMINE SACCHARATE\DEXTROAMPHETAMINE SULFATE
  12. ACETAMINOPHEN. [Concomitant]
     Active Substance: ACETAMINOPHEN
  13. IPRATROPIUM-ALBUTEROL [Concomitant]
     Active Substance: ALBUTEROL\IPRATROPIUM
  14. EPIPEN [Concomitant]
     Active Substance: EPINEPHRINE
  15. HIZENTRA [Suspect]
     Active Substance: HUMAN IMMUNOGLOBULIN G
     Route: 058

REACTIONS (1)
  - Sinusitis [Unknown]
